FAERS Safety Report 5829424-2 (Version None)
Quarter: 2008Q3

REPORT INFORMATION
  Report Type: 
  Country: None (occurrence: None)
  Receive Date: 20080729
  Receipt Date: 20080714
  Transmission Date: 20090109
  Serious: Yes (Life-Threatening, Hospitalization)
  Sender: FDA-Public Use
  Company Number: 1419181-2008-0003

PATIENT
  Age: 59 Year
  Sex: Male
  Weight: 95.7 kg

DRUGS (8)
  1. CHLORHEXIDINE GLUCONATE [Suspect]
     Indication: ANTIBIOTIC PROPHYLAXIS
     Dosage: 2500-3000MG DAILY TOPICAL
     Route: 061
     Dates: start: 20080604, end: 20080623
  2. CHLORHEXIDINE GLUCONATE [Suspect]
  3. CHLORHEXIDINE GLUCONATE [Suspect]
  4. MULTIPLE PERIPHERAL IV LINES [Concomitant]
  5. TRIPLE LUMEN CENTRAL VENOUS CATHETER [Concomitant]
  6. HEMODIALYSIS CATHETER AND PERIPHERALLY INSERTED CENTRAL CATHETER (PICC [Concomitant]
  7. TWO CHEST TUBES [Concomitant]
  8. JACKSON-PRATT DRAIN [Concomitant]

REACTIONS (4)
  - BURKHOLDERIA CEPACIA INFECTION [None]
  - CATHETER RELATED INFECTION [None]
  - CULTURE POSITIVE [None]
  - PHARMACEUTICAL PRODUCT COMPLAINT [None]
